FAERS Safety Report 10372816 (Version 1)
Quarter: 2014Q3

REPORT INFORMATION
  Report Type: Spontaneous
  Country: US (occurrence: US)
  Receive Date: 20140808
  Receipt Date: 20140808
  Transmission Date: 20150326
  Serious: No
  Sender: FDA-Public Use
  Company Number: US-BRISTOL-MYERS SQUIBB COMPANY-19468842

PATIENT
  Age: 43 Year
  Sex: Female

DRUGS (3)
  1. ZYRTEC [Concomitant]
     Active Substance: CETIRIZINE HYDROCHLORIDE
     Dosage: CHW
  2. METOPROLOL [Concomitant]
     Active Substance: METOPROLOL
     Dosage: TABLET ER
  3. SPRYCEL [Suspect]
     Active Substance: DASATINIB
     Dosage: 100MG TABS.
     Route: 048

REACTIONS (2)
  - Acne [Unknown]
  - Menorrhagia [Unknown]

NARRATIVE: CASE EVENT DATE: 20120901
